FAERS Safety Report 8222462-4 (Version None)
Quarter: 2012Q1

REPORT INFORMATION
  Report Type: 
  Country: None (occurrence: None)
  Receive Date: 20120320
  Receipt Date: 20120305
  Transmission Date: 20120608
  Serious: Yes (Other)
  Sender: FDA-Public Use
  Company Number: PHHY2012JP020437

PATIENT
  Age: 45 Year
  Sex: Female

DRUGS (2)
  1. PREDNISOLONE [Concomitant]
     Indication: DERMATITIS EXFOLIATIVE
     Dosage: UNK UKN, UNK
     Route: 048
  2. CYCLOSPORINE [Suspect]
     Indication: DERMATITIS EXFOLIATIVE
     Dosage: UNK UKN, UNK
     Route: 048

REACTIONS (3)
  - SPINAL OSTEOARTHRITIS [None]
  - ENDOCARDITIS [None]
  - BRAIN ABSCESS [None]
